FAERS Safety Report 9610952 (Version 1)
Quarter: 2013Q4

REPORT INFORMATION
  Report Type: Report from Study
  Country: BR (occurrence: BR)
  Receive Date: 20131009
  Receipt Date: 20131009
  Transmission Date: 20140711
  Serious: Yes (Death, Other)
  Sender: FDA-Public Use
  Company Number: PHHY2013BR112673

PATIENT
  Sex: Female

DRUGS (1)
  1. FORASEQ [Suspect]
     Dosage: UNK UKN, UNK

REACTIONS (3)
  - Infection [Fatal]
  - Femur fracture [Fatal]
  - Fall [Fatal]
